FAERS Safety Report 18711681 (Version 1)
Quarter: 2021Q1

REPORT INFORMATION
  Report Type: Spontaneous
  Country: US (occurrence: US)
  Receive Date: 20210106
  Receipt Date: 20210106
  Transmission Date: 20210419
  Serious: No
  Sender: FDA-Public Use
  Company Number: None

PATIENT
  Age: 45 Year
  Sex: Female

DRUGS (1)
  1. HUMIRA [Suspect]
     Active Substance: ADALIMUMAB
     Indication: ARTHRITIS
     Route: 058
     Dates: start: 20170622

REACTIONS (7)
  - Pain in extremity [None]
  - Feeling abnormal [None]
  - Suspected product quality issue [None]
  - Dizziness [None]
  - Asthenia [None]
  - Gait inability [None]
  - Nausea [None]

NARRATIVE: CASE EVENT DATE: 20201214
